FAERS Safety Report 15036660 (Version 1)
Quarter: 2018Q2

REPORT INFORMATION
  Report Type: Spontaneous
  Country: US (occurrence: US)
  Receive Date: 20180530
  Receipt Date: 20180530
  Transmission Date: 20180711
  Serious: No
  Sender: FDA-Public Use
  Company Number: None

PATIENT
  Age: 55 Year
  Sex: Male

DRUGS (2)
  1. XARELTO [Concomitant]
     Active Substance: RIVAROXABAN
  2. XALKORI [Suspect]
     Active Substance: CRIZOTINIB
     Dates: start: 20160629, end: 20180530

REACTIONS (2)
  - Malignant neoplasm progression [None]
  - Brain neoplasm malignant [None]

NARRATIVE: CASE EVENT DATE: 20180530
